FAERS Safety Report 20009769 (Version 1)
Quarter: 2021Q4

REPORT INFORMATION
  Report Type: Spontaneous
  Country: US (occurrence: US)
  Receive Date: 20211029
  Receipt Date: 20211029
  Transmission Date: 20220303
  Serious: Yes (Disabling)
  Sender: FDA-Public Use
  Company Number: None

PATIENT
  Age: 47 Year
  Sex: Female
  Weight: 137.25 kg

DRUGS (1)
  1. SUMATRIPTAN [Suspect]
     Active Substance: SUMATRIPTAN
     Indication: Migraine
     Dosage: ?          QUANTITY:1 TABLET(S);
     Route: 048
     Dates: start: 20201101, end: 20210815

REACTIONS (5)
  - Palpitations [None]
  - Arrhythmia [None]
  - Supraventricular tachycardia [None]
  - Ventricular extrasystoles [None]
  - Therapy cessation [None]

NARRATIVE: CASE EVENT DATE: 20210415
